FAERS Safety Report 9155627 (Version 1)
Quarter: 2013Q1

REPORT INFORMATION
  Report Type: Report from Study
  Country: US (occurrence: US)
  Receive Date: 20130311
  Receipt Date: 20130311
  Transmission Date: 20140127
  Serious: Yes (Hospitalization, Other)
  Sender: FDA-Public Use
  Company Number: US-ABBOTT-13P-163-1058394-00

PATIENT
  Age: 42 Year
  Sex: Female

DRUGS (3)
  1. HUMIRA [Suspect]
     Indication: CROHN^S DISEASE
     Dates: end: 2006
  2. HUMIRA [Suspect]
     Dates: start: 20130227
  3. VITAMIN B-12 [Concomitant]
     Indication: PRODUCT USED FOR UNKNOWN INDICATION

REACTIONS (9)
  - Fistula [Unknown]
  - Parenteral nutrition [Unknown]
  - Ileostomy [Unknown]
  - Colostomy closure [Unknown]
  - Device related infection [Unknown]
  - Renal disorder [Unknown]
  - Treatment noncompliance [Not Recovered/Not Resolved]
  - Dehydration [Unknown]
  - Drug administration error [Unknown]
